FAERS Safety Report 22325351 (Version 1)
Quarter: 2023Q2

REPORT INFORMATION
  Report Type: Spontaneous
  Country: US (occurrence: US)
  Receive Date: 20230516
  Receipt Date: 20230516
  Transmission Date: 20230721
  Serious: No
  Sender: FDA-Public Use
  Company Number: US-MYLANLABS-2023M1041334

PATIENT
  Sex: Male
  Weight: 65.77 kg

DRUGS (1)
  1. TETRABENAZINE [Suspect]
     Active Substance: TETRABENAZINE
     Indication: Dystonia
     Dosage: 25 MILLIGRAM, TID
     Route: 048
     Dates: start: 20230113, end: 20230412

REACTIONS (1)
  - Depression [Unknown]
